FAERS Safety Report 4805675-0 (Version None)
Quarter: 2005Q4

REPORT INFORMATION
  Report Type: 
  Country: None (occurrence: None)
  Receive Date: 20051018
  Receipt Date: 20051003
  Transmission Date: 20060501
  Serious: Yes (Other)
  Sender: FDA-Public Use
  Company Number: 2005131187

PATIENT
  Age: 59 Year
  Sex: Female
  Weight: 88.4514 kg

DRUGS (21)
  1. NORVASC [Suspect]
     Indication: ANGINA PECTORIS
     Dosage: 10 MG (10 MG, 1 IN 1 D), ORAL
     Route: 048
  2. NORVASC [Suspect]
     Indication: HYPERTENSION
     Dosage: 10 MG (10 MG, 1 IN 1 D), ORAL
     Route: 048
  3. DETROL LA [Suspect]
     Indication: RENAL DISORDER
     Dosage: 8 MG (4 MG, 2 IN 1 D), ORAL
     Route: 048
     Dates: start: 20050101, end: 20050101
  4. METOPROLOL TARTRATE [Concomitant]
  5. ENALAPRIL MALEATE [Concomitant]
  6. HYDROCODONE BITARTRATE [Concomitant]
  7. DILTIAZEM [Concomitant]
  8. CYCLOBENZAPRINE HCL [Concomitant]
  9. FUROSEMIDE [Concomitant]
  10. POTASSIUM (POTASSIUM) [Concomitant]
  11. METROGEL [Concomitant]
  12. PLAVIX [Concomitant]
  13. ADVAIR DISKUS 100/50 [Concomitant]
  14. ELIDEL [Concomitant]
  15. ZETIA [Concomitant]
  16. MONTELUKAST (MONTELUKAST) [Concomitant]
  17. NASONEX [Concomitant]
  18. PROTONIX [Concomitant]
  19. FLURBIPROFEN [Concomitant]
  20. ALBUTEROL [Concomitant]
  21. ALLERGY MEDICATION (ALLERGY MEDICATIION) [Concomitant]

REACTIONS (4)
  - NEPHROLITHIASIS [None]
  - OXYGEN SATURATION DECREASED [None]
  - RENAL DISORDER [None]
  - TREATMENT NONCOMPLIANCE [None]
